FAERS Safety Report 8549882-2 (Version None)
Quarter: 2012Q3

REPORT INFORMATION
  Report Type: 
  Country: None (occurrence: None)
  Receive Date: 20120730
  Receipt Date: 20111116
  Transmission Date: 20120928
  Serious: No
  Sender: FDA-Public Use
  Company Number: US-GLAXOSMITHKLINE-A0953426A

PATIENT
  Age: 23 Year
  Sex: Female

DRUGS (3)
  1. TOPAMAX [Concomitant]
  2. IMITREX [Suspect]
     Indication: MIGRAINE
     Dosage: 100MG AS REQUIRED
     Route: 048
     Dates: start: 20020101, end: 20090101
  3. TRI-SPRINTEC [Concomitant]

REACTIONS (2)
  - DRUG INEFFECTIVE [None]
  - IMMUNOLOGY TEST [None]
